FAERS Safety Report 8964870 (Version 1)
Quarter: 2012Q4

REPORT INFORMATION
  Report Type: 
  Country: AU (occurrence: AU)
  Receive Date: 20121213
  Receipt Date: 20121213
  Transmission Date: 20130627
  Serious: Yes (Other)
  Sender: FDA-Public Use
  Company Number: AU-ROCHE-1168466

PATIENT
  Sex: Female

DRUGS (3)
  1. SOMATROPIN [Suspect]
     Indication: PRODUCT USED FOR UNKNOWN INDICATION
     Route: 065
  2. HYDROCORTISONE [Concomitant]
  3. THYROXINE SODIUM [Concomitant]

REACTIONS (1)
  - Hypoglycaemic seizure [Unknown]
